FAERS Safety Report 9679153 (Version 4)
Quarter: 2014Q3

REPORT INFORMATION
  Report Type: Spontaneous
  Country: JP (occurrence: None)
  Receive Date: 20131107
  Receipt Date: 20140710
  Transmission Date: 20150326
  Serious: Yes (Life-Threatening, Hospitalization, Disabling)
  Sender: FDA-Public Use
  Company Number: SYM-2013-12403

PATIENT
  Age: 68 Year
  Sex: Male
  Weight: 42 kg

DRUGS (3)
  1. CHOREAZINE [Suspect]
     Active Substance: TETRABENAZINE
     Indication: HUNTINGTON^S DISEASE
     Route: 048
     Dates: start: 20130717, end: 20130910
  2. ENSURE [Concomitant]
     Active Substance: AMINO ACIDS\DEXTROSE\ELECTROLYTES NOS\SOYBEAN OIL\VITAMINS
  3. MAGNESIUM OXIDE. [Concomitant]
     Active Substance: MAGNESIUM OXIDE

REACTIONS (12)
  - Decreased appetite [None]
  - Altered state of consciousness [None]
  - Dehydration [None]
  - Depressed level of consciousness [None]
  - Salivary hypersecretion [None]
  - Pneumonia aspiration [None]
  - Asthenia [None]
  - Dysphagia [None]
  - Bedridden [None]
  - Malnutrition [None]
  - Pneumonia [None]
  - Diarrhoea [None]

NARRATIVE: CASE EVENT DATE: 20131210
